FAERS Safety Report 8908110 (Version 1)
Quarter: 2012Q4

REPORT INFORMATION
  Report Type: 
  Country: US (occurrence: US)
  Receive Date: 20121113
  Receipt Date: 20121113
  Transmission Date: 20130627
  Serious: No
  Sender: FDA-Public Use
  Company Number: US-AMGEN-USASP2012038783

PATIENT
  Age: 58 Year
  Sex: Female
  Weight: 44.44 kg

DRUGS (6)
  1. ENBREL [Suspect]
     Indication: PRODUCT USED FOR UNKNOWN INDICATION
     Dosage: 50 mg/ml, qwk
     Route: 058
  2. PLAQUENIL                          /00072602/ [Concomitant]
     Dosage: 200 mg, UNK
     Route: 048
  3. PREMPRO [Concomitant]
     Dosage: .625-2.5 mg po
     Route: 048
  4. METHOTREXATE [Concomitant]
     Dosage: 2.5 mg, UNK
     Route: 048
  5. FOLIC ACID [Concomitant]
     Dosage: UNK
     Route: 048
  6. LEVOXYL [Concomitant]
     Dosage: 137 mug, UNK
     Route: 048

REACTIONS (2)
  - Rash erythematous [Unknown]
  - Rash pruritic [Unknown]
